FAERS Safety Report 6800802-8 (Version None)
Quarter: 2010Q2

REPORT INFORMATION
  Report Type: 
  Country: None (occurrence: None)
  Receive Date: 20100629
  Receipt Date: 20100617
  Transmission Date: 20101027
  Serious: Yes (Other)
  Sender: FDA-Public Use
  Company Number: US-PFIZER INC-2010074285

PATIENT
  Age: 99 Year
  Sex: Female

DRUGS (4)
  1. TOLTERODINE TARTRATE [Suspect]
     Dosage: 2 MG, UNK
  2. HYDROCHLOROTHIAZIDE [Concomitant]
     Dosage: 25 MG, 1X/DAY
  3. NIFEDIPINE [Concomitant]
     Dosage: 30 MG, 1X/DAY
  4. ACETYLSALICYLIC ACID [Concomitant]
     Dosage: 81 MG, 1X/DAY

REACTIONS (3)
  - CULTURE URINE POSITIVE [None]
  - INAPPROPRIATE ANTIDIURETIC HORMONE SECRETION [None]
  - URINARY RETENTION [None]
